FAERS Safety Report 8003969-1 (Version None)
Quarter: 2011Q4

REPORT INFORMATION
  Report Type: 
  Country: None (occurrence: None)
  Receive Date: 20111222
  Receipt Date: 20111213
  Transmission Date: 20120403
  Serious: Yes (Other)
  Sender: FDA-Public Use
  Company Number: JP-ASTRAZENECA-2011SE76589

PATIENT
  Age: 78 Year
  Sex: Male

DRUGS (3)
  1. SEROQUEL [Suspect]
     Route: 048
  2. RISPERIDONE [Concomitant]
  3. SEROQUEL [Suspect]
     Route: 048
     Dates: start: 20110601

REACTIONS (2)
  - SKULL FRACTURE [None]
  - FALL [None]
